FAERS Safety Report 10300220 (Version 1)
Quarter: 2014Q3

REPORT INFORMATION
  Report Type: Spontaneous
  Country: JP (occurrence: JP)
  Receive Date: 20140711
  Receipt Date: 20140711
  Transmission Date: 20150326
  Serious: No
  Sender: FDA-Public Use
  Company Number: PHHY2011JP120522

PATIENT

DRUGS (4)
  1. GLIVEC [Suspect]
     Active Substance: IMATINIB MESYLATE
  2. TASIGNA [Suspect]
     Active Substance: NILOTINIB
     Dosage: 800 MG, UNK
  3. DASATINIB [Suspect]
     Active Substance: DASATINIB
  4. TASIGNA [Suspect]
     Active Substance: NILOTINIB
     Dosage: 600 MG, UNK

REACTIONS (1)
  - Haematotoxicity [Unknown]
